FAERS Safety Report 6214079-8 (Version None)
Quarter: 2009Q2

REPORT INFORMATION
  Report Type: 
  Country: None (occurrence: None)
  Receive Date: 20090604
  Receipt Date: 20090529
  Transmission Date: 20091009
  Serious: Yes (Death, Hospitalization)
  Sender: FDA-Public Use
  Company Number: FR-ROCHE-610268

PATIENT
  Sex: Male

DRUGS (5)
  1. ROCEPHIN [Suspect]
     Indication: DRUG USE FOR UNKNOWN INDICATION
     Route: 030
     Dates: start: 20081229, end: 20090106
  2. SINTROM [Concomitant]
     Dosage: DRUG REPORTED AS SINTROM 4 MG; TAKEN AT BEDTIME
     Route: 048
  3. NISISCO [Concomitant]
     Dosage: HYDROCHLOROTHIAZIDE 160 MG + VALSARTAN 25 MG; TAKEN IN THE MORNING
     Route: 048
  4. TAREG [Concomitant]
  5. ESIDRIX [Concomitant]

REACTIONS (4)
  - DERMATITIS EXFOLIATIVE [None]
  - DRUG RASH WITH EOSINOPHILIA AND SYSTEMIC SYMPTOMS [None]
  - EOSINOPHILIA [None]
  - RENAL FAILURE ACUTE [None]
